FAERS Safety Report 14353482 (Version 1)
Quarter: 2018Q1

REPORT INFORMATION
  Report Type: Spontaneous
  Country: US (occurrence: US)
  Receive Date: 20180105
  Receipt Date: 20180105
  Transmission Date: 20180509
  Serious: No
  Sender: FDA-Public Use
  Company Number: US-SHIRE-US201732498

PATIENT
  Sex: Female

DRUGS (1)
  1. XIIDRA [Suspect]
     Active Substance: LIFITEGRAST
     Indication: SJOGREN^S SYNDROME
     Route: 065

REACTIONS (6)
  - Influenza like illness [Unknown]
  - Sneezing [Unknown]
  - Nausea [Unknown]
  - Instillation site pruritus [Unknown]
  - Hypoacusis [Unknown]
  - Instillation site pain [Unknown]
